FAERS Safety Report 6336407-5 (Version None)
Quarter: 2009Q3

REPORT INFORMATION
  Report Type: 
  Country: None (occurrence: None)
  Receive Date: 20090828
  Receipt Date: 20090816
  Transmission Date: 20100115
  Serious: Yes (Hospitalization)
  Sender: FDA-Public Use
  Company Number: GB-DEXPHARM-20091201

PATIENT
  Age: 70 Year
  Sex: Male

DRUGS (2)
  1. OMEPRAZOLE [Suspect]
     Dosage: DOSE: 20 MG MILLIGRAM(S) ORAL
     Route: 048
     Dates: start: 20090530, end: 20090730
  2. DICLOFENAC SODIUM [Suspect]
     Indication: OSTEOARTHRITIS
     Dosage: DOSE: 50 MG MILLIGRAM(S) SEP. DOSAGES / INTERVAL: 3 IN 1 DAY ORAL
     Route: 048
     Dates: start: 20090530, end: 20090730

REACTIONS (2)
  - LETHARGY [None]
  - RENAL FAILURE ACUTE [None]
